FAERS Safety Report 14597801 (Version 1)
Quarter: 2018Q1

REPORT INFORMATION
  Report Type: Spontaneous
  Country: US (occurrence: US)
  Receive Date: 20180305
  Receipt Date: 20180305
  Transmission Date: 20180509
  Serious: No
  Sender: FDA-Public Use
  Company Number: US-PFIZER INC-2018062877

PATIENT
  Age: 81 Year
  Sex: Female
  Weight: 54 kg

DRUGS (3)
  1. XALKORI [Suspect]
     Active Substance: CRIZOTINIB
     Indication: LUNG NEOPLASM MALIGNANT
     Dosage: 250 MG, 2X/DAY (EVERY 12HRS)
     Dates: start: 20180214
  2. HYDROCODONE [Concomitant]
     Active Substance: HYDROCODONE
     Dosage: 7 MG, UNK
  3. HYDROCODONE [Concomitant]
     Active Substance: HYDROCODONE
     Dosage: 10 MG, UNK

REACTIONS (9)
  - Asthenia [Unknown]
  - Vomiting [Recovered/Resolved]
  - Weight decreased [Unknown]
  - Fall [Unknown]
  - Insomnia [Unknown]
  - Speech disorder [Unknown]
  - Gait disturbance [Unknown]
  - Head discomfort [Unknown]
  - Eating disorder [Unknown]

NARRATIVE: CASE EVENT DATE: 201802
